FAERS Safety Report 4546786-7 (Version None)
Quarter: 2005Q1

REPORT INFORMATION
  Report Type: 
  Country: None (occurrence: None)
  Receive Date: 20050105
  Receipt Date: 20041223
  Transmission Date: 20050727
  Serious: Yes (Death, Hospitalization)
  Sender: FDA-Public Use
  Company Number: 2003123308

PATIENT
  Age: 33 Year
  Sex: Male

DRUGS (3)
  1. PHENYTOIN [Suspect]
     Indication: POISONING
     Dosage: 4 G, ORAL
     Route: 048
  2. ACETAMINOPHEN [Suspect]
     Indication: POISONING
     Dosage: 24 G, ORAL
     Route: 048
     Dates: start: 19990120
  3. PONSTEL [Suspect]
     Indication: POISONING
     Dosage: 6.25 G, ORAL
     Route: 048

REACTIONS (10)
  - ACIDOSIS [None]
  - BRAIN OEDEMA [None]
  - ENCEPHALOPATHY [None]
  - HEPATIC FAILURE [None]
  - INTENTIONAL MISUSE [None]
  - LEUKOCYTOSIS [None]
  - PYREXIA [None]
  - RENAL IMPAIRMENT [None]
  - RESPIRATORY FAILURE [None]
  - THERAPEUTIC RESPONSE INCREASED [None]
